FAERS Safety Report 25040072 (Version 1)
Quarter: 2025Q1

REPORT INFORMATION
  Report Type: Spontaneous
  Country: US (occurrence: US)
  Receive Date: 20250305
  Receipt Date: 20250305
  Transmission Date: 20250409
  Serious: No
  Sender: JOHNSON AND JOHNSON
  Company Number: US-JNJFOC-20250175833

PATIENT
  Age: 69 Year
  Sex: Female

DRUGS (1)
  1. MACITENTAN\TADALAFIL [Suspect]
     Active Substance: MACITENTAN\TADALAFIL
     Indication: Product used for unknown indication
     Dosage: 10/20 MG
     Route: 048
     Dates: start: 201901

REACTIONS (1)
  - Hypotension [Recovered/Resolved]
